FAERS Safety Report 18001092 (Version 3)
Quarter: 2021Q3

REPORT INFORMATION
  Report Type: Spontaneous
  Country: FR (occurrence: FR)
  Receive Date: 20200709
  Receipt Date: 20210902
  Transmission Date: 20211014
  Serious: Yes (Disabling, Congenital Anomaly)
  Sender: FDA-Public Use
  Company Number: FR-ROCHE-2632545

PATIENT
  Age: 38 Year
  Sex: Male
  Weight: 2.62 kg

DRUGS (3)
  1. DEPAKINE [Suspect]
     Active Substance: VALPROATE SODIUM
     Indication: PRODUCT USED FOR UNKNOWN INDICATION
     Dosage: 3 DF, QD
     Route: 064
     Dates: start: 198102, end: 19810903
  2. ALEPSAL (PHENOBARBITAL) [Suspect]
     Active Substance: PHENOBARBITAL
     Indication: PRODUCT USED FOR UNKNOWN INDICATION
     Dosage: 1 DF, QD
     Route: 064
     Dates: start: 198102, end: 19810903
  3. CLONAZEPAM. [Suspect]
     Active Substance: CLONAZEPAM
     Indication: PRODUCT USED FOR UNKNOWN INDICATION
     Route: 064
     Dates: start: 198102, end: 19810903

REACTIONS (34)
  - Somnolence [Unknown]
  - Weight increased [Unknown]
  - Speech disorder [Unknown]
  - Movement disorder [Unknown]
  - Developmental delay [Unknown]
  - Disorientation [Unknown]
  - Strabismus [Unknown]
  - Oedema peripheral [Unknown]
  - Anxiety disorder [Unknown]
  - Congenital eyelid malformation [Unknown]
  - Epilepsy [Unknown]
  - Communication disorder [Unknown]
  - Psychomotor retardation [Unknown]
  - Limb malformation [Unknown]
  - Dysphemia [Unknown]
  - Tremor [Unknown]
  - Diplegia [Unknown]
  - Foetal exposure during pregnancy [Unknown]
  - Haemangioma [Recovering/Resolving]
  - Kyphoscoliosis [Unknown]
  - Language disorder [Unknown]
  - Intellectual disability [Unknown]
  - Hypertonia [Unknown]
  - Inguinal hernia [Unknown]
  - Dysmorphism [Unknown]
  - Amino acid level increased [Unknown]
  - Nose deformity [Unknown]
  - Disturbance in attention [Unknown]
  - Paternal exposure during pregnancy [Unknown]
  - Congenital hand malformation [Unknown]
  - Balance disorder [Unknown]
  - Talipes [Unknown]
  - Hypotonia [Unknown]
  - Aggression [Unknown]

NARRATIVE: CASE EVENT DATE: 19810903
